FAERS Safety Report 17174880 (Version 1)
Quarter: 2019Q4

REPORT INFORMATION
  Report Type: Other
  Country: CA (occurrence: CA)
  Receive Date: 20191219
  Receipt Date: 20191219
  Transmission Date: 20200122
  Serious: Yes (Other)
  Sender: FDA-Public Use
  Company Number: CA-BECTON DICKINSON-2019BDN00428

PATIENT
  Age: 42 Year
  Sex: Female
  Weight: 81 kg

DRUGS (35)
  1. METHOTREXATE. [Suspect]
     Active Substance: METHOTREXATE
  2. OXYCODONE TEREPHTHALATE [Suspect]
     Active Substance: OXYCODONE TEREPHTHALATE
  3. DESOGESTREL, ETHINYLESTRADIOL [Concomitant]
     Active Substance: DESOGESTREL
  4. ACETAMINOPHEN. [Suspect]
     Active Substance: ACETAMINOPHEN
  5. CAMELLIA SINENSIS W/COLECALCIFEROL/FISH OIL/TOCOPHEROL [Concomitant]
  6. COENZYME Q10 [Concomitant]
     Active Substance: UBIDECARENONE
  7. COLECALCIFEROL [Concomitant]
     Active Substance: CHOLECALCIFEROL
  8. FISH OIL [Concomitant]
     Active Substance: FISH OIL
  9. CIMZIA [Suspect]
     Active Substance: CERTOLIZUMAB PEGOL
     Indication: RHEUMATOID ARTHRITIS
     Dosage: 400 MG, EVERY 2 WEEKS
     Route: 058
  10. CIMZIA [Suspect]
     Active Substance: CERTOLIZUMAB PEGOL
     Dosage: 200 MG, EVERY 2 WEEKS
     Route: 058
  11. PREDNISONE. [Concomitant]
     Active Substance: PREDNISONE
  12. REACTINE [Concomitant]
  13. ARAVA [Suspect]
     Active Substance: LEFLUNOMIDE
  14. CIMZIA [Suspect]
     Active Substance: CERTOLIZUMAB PEGOL
     Dosage: 400 MG
     Route: 058
  15. PANTOPRAZOLE [Concomitant]
     Active Substance: PANTOPRAZOLE
  16. SULFAMETHOXAZOLE AND TRIMETHOPRIM [Concomitant]
     Active Substance: SULFAMETHOXAZOLE\TRIMETHOPRIM
  17. TYLENOL [Concomitant]
     Active Substance: ACETAMINOPHEN
  18. VITAMIN C [Concomitant]
     Active Substance: ASCORBIC ACID
  19. ACTEMRA [Suspect]
     Active Substance: TOCILIZUMAB
  20. LEFLUNOMIDE. [Suspect]
     Active Substance: LEFLUNOMIDE
  21. ORENCIA [Suspect]
     Active Substance: ABATACEPT
  22. IBUPROFEN. [Concomitant]
     Active Substance: IBUPROFEN
  23. CHLORHEXIDINE [Suspect]
     Active Substance: CHLORHEXIDINE
  24. CIMZIA [Suspect]
     Active Substance: CERTOLIZUMAB PEGOL
     Dosage: UNK
     Route: 058
  25. HYDROCHLOROQUINE [Concomitant]
     Active Substance: HYDROXYCHLOROQUINE SULFATE
  26. PANTOLOC [Concomitant]
     Active Substance: PANTOPRAZOLE SODIUM
  27. PLAQUENIL SULFATE [Concomitant]
     Active Substance: HYDROXYCHLOROQUINE SULFATE
  28. ZOPICLONE [Concomitant]
     Active Substance: ZOPICLONE
  29. PERIOGARD ALCOHOL FREE [Suspect]
     Active Substance: CHLORHEXIDINE GLUCONATE
     Route: 002
  30. SULFAMETHOXAZOLE AND TRIMETHOPRIM [Suspect]
     Active Substance: SULFAMETHOXAZOLE\TRIMETHOPRIM
  31. ALFACALCIDOL [Concomitant]
     Active Substance: ALFACALCIDOL
  32. VENTOLIN [Concomitant]
     Active Substance: ALBUTEROL SULFATE
  33. VITAMIN D [Concomitant]
     Active Substance: VITAMIN D NOS
  34. ENBREL [Suspect]
     Active Substance: ETANERCEPT
     Indication: RHEUMATOID ARTHRITIS
     Route: 058
  35. SIMPONI [Suspect]
     Active Substance: GOLIMUMAB
     Route: 058

REACTIONS (21)
  - Back pain [Unknown]
  - Contraindicated product administered [Unknown]
  - Joint swelling [Unknown]
  - Sinusitis [Unknown]
  - Pruritus [Unknown]
  - Abdominal pain upper [Unknown]
  - Lower respiratory tract infection [Unknown]
  - Respiratory disorder [Unknown]
  - Body temperature increased [Unknown]
  - Diarrhoea [Unknown]
  - Vomiting [Unknown]
  - Asthenia [Unknown]
  - Ear pain [Unknown]
  - Insomnia [Unknown]
  - Pain [Unknown]
  - Rash [Unknown]
  - Headache [Unknown]
  - Muscle spasticity [Unknown]
  - Night sweats [Unknown]
  - Peripheral swelling [Unknown]
  - Urticaria [Unknown]
